FAERS Safety Report 16942884 (Version 1)
Quarter: 2019Q4

REPORT INFORMATION
  Report Type: Spontaneous
  Country: CA (occurrence: CA)
  Receive Date: 20191021
  Receipt Date: 20191021
  Transmission Date: 20200122
  Serious: Yes (Disabling)
  Sender: FDA-Public Use
  Company Number: CA-ALLERGAN-1941738US

PATIENT
  Sex: Female
  Weight: 61.22 kg

DRUGS (1)
  1. BOTOX COSMETIC [Suspect]
     Active Substance: ONABOTULINUMTOXINA
     Indication: SKIN WRINKLING
     Dosage: 20 UNITS, SINGLE
     Route: 051

REACTIONS (17)
  - Tunnel vision [Recovering/Resolving]
  - Dyspnoea [Recovering/Resolving]
  - Amnesia [Recovering/Resolving]
  - Paraesthesia [Recovering/Resolving]
  - Hyperacusis [Recovering/Resolving]
  - Vision blurred [Recovering/Resolving]
  - Dysphagia [Recovering/Resolving]
  - Aphasia [Recovering/Resolving]
  - Photophobia [Recovering/Resolving]
  - Tinnitus [Recovering/Resolving]
  - Gastrooesophageal reflux disease [Recovering/Resolving]
  - Confusional state [Recovering/Resolving]
  - Disorientation [Recovering/Resolving]
  - Throat tightness [Recovering/Resolving]
  - Anxiety [Recovering/Resolving]
  - Derealisation [Recovering/Resolving]
  - Feeling abnormal [Recovering/Resolving]
